FAERS Safety Report 12973538 (Version 4)
Quarter: 2017Q1

REPORT INFORMATION
  Report Type: Report from Study
  Country: JP (occurrence: JP)
  Receive Date: 20161124
  Receipt Date: 20170209
  Transmission Date: 20170428
  Serious: Yes (Hospitalization)
  Sender: FDA-Public Use
  Company Number: JP-ROCHE-1856472

PATIENT
  Age: 70 Year
  Sex: Male
  Weight: 58.5 kg

DRUGS (7)
  1. PREDNISONE. [Suspect]
     Active Substance: PREDNISONE
     Indication: DIFFUSE LARGE B-CELL LYMPHOMA
     Dosage: DOSE OF LAST PREDNISONE TAKEN: 100 MG?DATE OF MOST RECENT DOSE OF PREDNISONE PRIOR TO SAE: 16/JUN/20
     Route: 048
     Dates: start: 20140107
  2. DOXORUBICIN [Suspect]
     Active Substance: DOXORUBICIN
     Indication: DIFFUSE LARGE B-CELL LYMPHOMA
     Dosage: DOSE OF LAST DOXORUBICIN TAKEN: 76MG?DATE OF MOST RECENT DOSE OF DOXORUBICIN PRIOR TO SAE: 12/JUN/20
     Route: 042
     Dates: start: 20140108
  3. DAIPHEN [Concomitant]
     Active Substance: SULFAMETHOXAZOLE\TRIMETHOPRIM
     Route: 065
     Dates: start: 20160512
  4. OBINUTUZUMAB [Suspect]
     Active Substance: OBINUTUZUMAB
     Indication: DIFFUSE LARGE B-CELL LYMPHOMA
     Dosage: VOLUME OF LAST OBINUTUZUMAB TAKEN: 1000ML: DOSE CONCENTRATION: 4MG/ML?DATE OF MOST RECENT DOSE OF OB
     Route: 042
     Dates: start: 20140107
  5. CYCLOPHOSPHAMIDE. [Suspect]
     Active Substance: CYCLOPHOSPHAMIDE
     Indication: DIFFUSE LARGE B-CELL LYMPHOMA
     Dosage: DOSE OF LAST CYCLOPHOSPHAMIDE TAKEN: 1150MG?DATE OF MOST RECENT DOSE OF CYCLOPHOSPHAMIDE PRIOR TO SA
     Route: 042
     Dates: start: 20140108
  6. MECOBALAMIN [Concomitant]
     Active Substance: METHYLCOBALAMIN
     Indication: PERIPHERAL SENSORY NEUROPATHY
     Route: 065
     Dates: start: 20140612
  7. VINCRISTINE [Suspect]
     Active Substance: VINCRISTINE
     Indication: DIFFUSE LARGE B-CELL LYMPHOMA
     Dosage: DOSE OF LAST VINCRISTINE TAKEN: 1MG?DATE OF MOST RECENT DOSE OF VINCRISTINE PRIOR TO SAE: 12/JUN/201
     Route: 040
     Dates: start: 20140108

REACTIONS (1)
  - Colorectal cancer [Recovered/Resolved]

NARRATIVE: CASE EVENT DATE: 20161031
